FAERS Safety Report 24176125 (Version 3)
Quarter: 2024Q4

REPORT INFORMATION
  Report Type: Spontaneous
  Country: US (occurrence: US)
  Receive Date: 20240806
  Receipt Date: 20241015
  Transmission Date: 20250115
  Serious: No
  Sender: ROCHE
  Company Number: US-ROCHE-10000048513

PATIENT
  Sex: Male

DRUGS (2)
  1. HEMLIBRA [Suspect]
     Active Substance: EMICIZUMAB-KXWH
     Indication: Factor VIII deficiency
     Dosage: FREQUENCY: EVERY 2 WEEK?THERAPY :ONGOING
     Route: 058
     Dates: start: 202303
  2. HEMLIBRA [Suspect]
     Active Substance: EMICIZUMAB-KXWH
     Dosage: FREQUENCY: EVERY 2 WEEK?THERAPY :ONGOING
     Route: 058
     Dates: start: 202303

REACTIONS (5)
  - Haemorrhage [Unknown]
  - Nausea [Unknown]
  - Muscular weakness [Unknown]
  - Diabetes mellitus [Unknown]
  - Hypoglycaemia [Unknown]
